FAERS Safety Report 12469567 (Version 1)
Quarter: 2016Q2

REPORT INFORMATION
  Report Type: Spontaneous
  Country: CH (occurrence: CH)
  Receive Date: 20160615
  Receipt Date: 20160615
  Transmission Date: 20160815
  Serious: Yes (Other)
  Sender: FDA-Public Use
  Company Number: CH-TEVA-668138ISR

PATIENT
  Age: 80 Year
  Sex: Female

DRUGS (3)
  1. LOPERAMIDE [Interacting]
     Active Substance: LOPERAMIDE
     Dosage: 30 MILLIGRAM DAILY;
  2. COLESTYRAMINE [Interacting]
     Active Substance: CHOLESTYRAMINE
  3. LOPERAMIDE [Suspect]
     Active Substance: LOPERAMIDE
     Dosage: 40 MILLIGRAM DAILY;

REACTIONS (4)
  - Somnolence [Recovered/Resolved]
  - Delirium [Recovered/Resolved]
  - Overdose [Recovered/Resolved]
  - Drug interaction [Recovered/Resolved]
